FAERS Safety Report 6772662-5 (Version None)
Quarter: 2010Q2

REPORT INFORMATION
  Report Type: 
  Country: None (occurrence: None)
  Receive Date: 20100616
  Receipt Date: 20090624
  Transmission Date: 20101027
  Serious: No
  Sender: FDA-Public Use
  Company Number: US-ASTRAZENECA-2009UW17658

PATIENT
  Age: 880 Day
  Sex: Male
  Weight: 20.4 kg

DRUGS (4)
  1. PULMICORT RESPULES [Suspect]
     Dosage: 0.5 MG
     Route: 055
     Dates: start: 20090601
  2. ALBUTEROL [Concomitant]
  3. CLARITIN [Concomitant]
  4. SUPREX [Concomitant]

REACTIONS (3)
  - EYE DISCHARGE [None]
  - EYE SWELLING [None]
  - OCULAR HYPERAEMIA [None]
